FAERS Safety Report 15284582 (Version 1)
Quarter: 2018Q3

REPORT INFORMATION
  Report Type: Spontaneous
  Country: US (occurrence: US)
  Receive Date: 20180801
  Receipt Date: 20180801
  Transmission Date: 20181010
  Serious: Yes (Hospitalization)
  Sender: FDA-Public Use
  Company Number: None

PATIENT
  Age: 63 Year
  Sex: Female

DRUGS (12)
  1. MIRTAZAPINE 15MG [Concomitant]
     Active Substance: MIRTAZAPINE
  2. BUPROPION XL 300MG [Concomitant]
     Active Substance: BUPROPION
  3. OMEPRAZOLE 20MG [Concomitant]
     Active Substance: OMEPRAZOLE
  4. ZIPRASIDONE 60MG [Concomitant]
  5. FERROUS SULFATE 325 MG [Concomitant]
  6. FLUTICASONE 50MCG [Concomitant]
     Active Substance: FLUTICASONE
  7. LAMOTRIGINE 150MG [Concomitant]
     Active Substance: LAMOTRIGINE
  8. SIMVASTATIN 40MG [Concomitant]
     Active Substance: SIMVASTATIN
  9. ONDANSETRON 4MG [Concomitant]
     Active Substance: ONDANSETRON
  10. TRINTELLIX [Concomitant]
     Active Substance: VORTIOXETINE HYDROBROMIDE
  11. FORTEO [Suspect]
     Active Substance: TERIPARATIDE
     Indication: OSTEOPOROSIS
     Route: 058
     Dates: start: 20180118
  12. CLONAZEPAM 1MG [Concomitant]
     Active Substance: CLONAZEPAM

REACTIONS (2)
  - Intestinal obstruction [None]
  - Drug dose omission [None]

NARRATIVE: CASE EVENT DATE: 20180621
